FAERS Safety Report 16257432 (Version 1)
Quarter: 2019Q2

REPORT INFORMATION
  Report Type: Spontaneous
  Country: US (occurrence: US)
  Receive Date: 20190430
  Receipt Date: 20190430
  Transmission Date: 20190711
  Serious: Yes (Other)
  Sender: FDA-Public Use
  Company Number: US-NOVOPROD-659527

PATIENT
  Sex: Male

DRUGS (4)
  1. NOVOLIN 70/30 [Suspect]
     Active Substance: INSULIN HUMAN
     Indication: TYPE 2 DIABETES MELLITUS
     Dosage: 10 IU
     Route: 058
     Dates: start: 1996
  2. NOVOLIN R [Suspect]
     Active Substance: INSULIN HUMAN
     Indication: TYPE 2 DIABETES MELLITUS
     Dosage: UNK
     Route: 058
     Dates: start: 1996
  3. NOVOLIN R [Suspect]
     Active Substance: INSULIN HUMAN
     Dosage: EXTRA DOSE
     Route: 058
  4. NOVOLIN 70/30 [Suspect]
     Active Substance: INSULIN HUMAN
     Dosage: DECREASED DOSE
     Route: 058

REACTIONS (6)
  - Diabetes mellitus inadequate control [Recovered/Resolved]
  - Asthma [Unknown]
  - Sleep apnoea syndrome [Not Recovered/Not Resolved]
  - Glycosylated haemoglobin increased [Unknown]
  - Weight increased [Recovered/Resolved]
  - Blood glucose increased [Recovered/Resolved]

NARRATIVE: CASE EVENT DATE: 1996
